FAERS Safety Report 7208177-X (Version None)
Quarter: 2010Q4

REPORT INFORMATION
  Report Type: 
  Country: None (occurrence: None)
  Receive Date: 20101230
  Receipt Date: 20101230
  Transmission Date: 20110411
  Serious: Yes (Life-Threatening, Hospitalization, Other)
  Sender: FDA-Public Use
  Company Number: None

PATIENT
  Age: 73 Year
  Sex: Male
  Weight: 77.1115 kg

DRUGS (1)
  1. COLESTIPOL HYDROCHLORIDE [Suspect]
     Indication: BLOOD CHOLESTEROL INCREASED
     Dosage: 2 GM EVERY DAY BY MOUTH  12 DAYS AT BEGINNING NEAR NOV 1ST
     Route: 048
     Dates: start: 20101101

REACTIONS (4)
  - BLOOD PRESSURE DECREASED [None]
  - GASTRIC HAEMORRHAGE [None]
  - RED BLOOD CELL ABNORMALITY [None]
  - VITAMIN B12 DECREASED [None]
